FAERS Safety Report 5031492-5 (Version None)
Quarter: 2006Q2

REPORT INFORMATION
  Report Type: 
  Country: None (occurrence: None)
  Receive Date: 20060616
  Receipt Date: 20060602
  Transmission Date: 20061013
  Serious: Yes (Hospitalization)
  Sender: FDA-Public Use
  Company Number: 2006S1003715

PATIENT
  Age: 45 Year
  Sex: Female

DRUGS (7)
  1. CLOZAPINE [Suspect]
     Dosage: 50 MG;QD; PO
     Route: 048
  2. CLOZAPINE [Suspect]
     Dosage: SEE IMAGE
     Route: 048
  3. CLONAZEPAM [Concomitant]
  4. VENLAXFAXINE [Concomitant]
  5. HALOPERIDOL [Concomitant]
  6. VALPROATE SODIUM [Concomitant]
  7. TRIAMCINOLONE ACETONIDE [Concomitant]

REACTIONS (3)
  - ABNORMAL BEHAVIOUR [None]
  - GRANULOCYTOPENIA [None]
  - MENTAL DISORDER [None]
